FAERS Safety Report 10884590 (Version 1)
Quarter: 2015Q1

REPORT INFORMATION
  Report Type: Spontaneous
  Country: US (occurrence: None)
  Receive Date: 20150227
  Receipt Date: 20150227
  Transmission Date: 20150721
  Serious: Yes (Disabling)
  Sender: FDA-Public Use
  Company Number: None

PATIENT
  Age: 65 Year
  Sex: Female
  Weight: 50.8 kg

DRUGS (11)
  1. PREDNISONE. [Concomitant]
     Active Substance: PREDNISONE
  2. ESBRIET [Concomitant]
     Active Substance: PIRFENIDONE
  3. DITROPAN [Concomitant]
     Active Substance: OXYBUTYNIN CHLORIDE
  4. OMEPERAZOLE [Concomitant]
  5. TRAMADOL [Concomitant]
     Active Substance: TRAMADOL
  6. ESBRIET [Suspect]
     Active Substance: PIRFENIDONE
     Indication: IDIOPATHIC PULMONARY FIBROSIS
     Dosage: 267 MG, 3 PILLS, 3X A DAY, BY MOUTH
     Route: 048
     Dates: start: 20141128
  7. EX. ST. TYLENOL [Concomitant]
  8. FENOFIBRATE. [Concomitant]
     Active Substance: FENOFIBRATE
  9. MULTI-VITAMIN FOR SENIORS [Concomitant]
  10. FISH OIL [Concomitant]
     Active Substance: FISH OIL
  11. PREMPRO [Concomitant]
     Active Substance: ESTROGENS, CONJUGATED\MEDROXYPROGESTERONE ACETATE

REACTIONS (6)
  - Asthenia [None]
  - Gastrooesophageal reflux disease [None]
  - Muscular weakness [None]
  - Weight decreased [None]
  - Fatigue [None]
  - Decreased appetite [None]
